FAERS Safety Report 6992004-X (Version None)
Quarter: 2010Q3

REPORT INFORMATION
  Report Type: 
  Country: None (occurrence: None)
  Receive Date: 20100917
  Receipt Date: 20100913
  Transmission Date: 20110219
  Serious: Yes (Hospitalization)
  Sender: FDA-Public Use
  Company Number: IT-PFIZER INC-2010108066

PATIENT
  Age: 52 Year
  Sex: Male

DRUGS (8)
  1. VFEND [Suspect]
     Indication: PNEUMONIA FUNGAL
     Dosage: 800 MG DAILY
     Route: 042
     Dates: start: 20100719, end: 20100805
  2. VANCOMYCIN [Concomitant]
  3. CYCLOSPORINE [Concomitant]
  4. ACICLOVIR [Concomitant]
  5. CIPROFLOXACIN [Concomitant]
  6. CORDARONE [Concomitant]
  7. SELEPARINA [Concomitant]
  8. EUTIROX [Concomitant]

REACTIONS (2)
  - HYPOTENSION [None]
  - HYPOTONIA [None]
